FAERS Safety Report 7404038-1 (Version None)
Quarter: 2011Q2

REPORT INFORMATION
  Report Type: 
  Country: None (occurrence: None)
  Receive Date: 20110408
  Receipt Date: 20110401
  Transmission Date: 20111010
  Serious: Yes (Hospitalization, Other)
  Sender: FDA-Public Use
  Company Number: US-BAYER-2011-012855

PATIENT
  Age: 31 Year
  Sex: Female
  Weight: 56.689 kg

DRUGS (2)
  1. PARAGARD T 380A [Concomitant]
     Dosage: UNK
     Route: 015
     Dates: start: 20100101, end: 20101209
  2. MIRENA [Suspect]
     Indication: CONTRACEPTION
     Dosage: 20 MCG/24HR, CONT
     Route: 015
     Dates: start: 20101214, end: 20101220

REACTIONS (3)
  - DEVICE DISLOCATION [None]
  - ABDOMINAL PAIN [None]
  - UTERINE PERFORATION [None]
